FAERS Safety Report 4871439-5 (Version None)
Quarter: 2005Q4

REPORT INFORMATION
  Report Type: 
  Country: None (occurrence: None)
  Receive Date: 20051229
  Receipt Date: 20051108
  Transmission Date: 20060501
  Serious: Yes (Death)
  Sender: FDA-Public Use
  Company Number: MK200512-0442-1

PATIENT
  Age: 20 Month
  Sex: Male

DRUGS (1)
  1. METHADOSE [Suspect]
     Dosage: PO
     Route: 048
     Dates: end: 20040101

REACTIONS (9)
  - BRAIN HERNIATION [None]
  - DRUG SCREEN POSITIVE [None]
  - GAZE PALSY [None]
  - HYPOXIA [None]
  - INJURY [None]
  - LOSS OF CONSCIOUSNESS [None]
  - MIOSIS [None]
  - RESPIRATORY RATE DECREASED [None]
  - SOMNOLENCE [None]
